FAERS Safety Report 9822862 (Version 2)
Quarter: 2014Q1

REPORT INFORMATION
  Report Type: Spontaneous
  Country: AR (occurrence: AR)
  Receive Date: 20140116
  Receipt Date: 20140116
  Transmission Date: 20141002
  Serious: Yes (Other)
  Sender: FDA-Public Use
  Company Number: AR-PFIZER INC-2013159649

PATIENT
  Age: 60 Year
  Sex: Female

DRUGS (2)
  1. RAPAMUNE [Suspect]
     Indication: RENAL TRANSPLANT
     Dosage: 1 MG, 1X/DAY
     Route: 048
     Dates: start: 20130319, end: 201305
  2. RAPAMUNE [Suspect]
     Dosage: UNK
     Dates: start: 20140115

REACTIONS (2)
  - Renal cancer [Recovering/Resolving]
  - Stomatitis [Recovered/Resolved]
